FAERS Safety Report 11129819 (Version 2)
Quarter: 2015Q2

REPORT INFORMATION
  Report Type: Report from Study
  Country: IE (occurrence: IE)
  Receive Date: 20150521
  Receipt Date: 20150616
  Transmission Date: 20150821
  Serious: Yes (Hospitalization)
  Sender: FDA-Public Use
  Company Number: IE-ABBVIE-15P-229-1368702-00

PATIENT
  Age: 73 Year
  Sex: Female

DRUGS (5)
  1. DUODOPA [Suspect]
     Active Substance: CARBIDOPA\LEVODOPA
     Dosage: CONTINUOUS DOSE 1.3ML
     Route: 050
     Dates: start: 20150324
  2. ELTROXIN [Concomitant]
     Active Substance: LEVOTHYROXINE
     Indication: PRODUCT USED FOR UNKNOWN INDICATION
  3. DUODOPA [Suspect]
     Active Substance: CARBIDOPA\LEVODOPA
     Indication: PARKINSON^S DISEASE
     Dosage: CONTINUOUS DOSE 1.2 ML
     Route: 050
     Dates: start: 20150324
  4. VITAMIN D3 [Concomitant]
     Active Substance: CHOLECALCIFEROL
     Indication: PRODUCT USED FOR UNKNOWN INDICATION
  5. FOLIC ACID. [Concomitant]
     Active Substance: FOLIC ACID
     Indication: PRODUCT USED FOR UNKNOWN INDICATION

REACTIONS (8)
  - Dyskinesia [Unknown]
  - Diarrhoea [Unknown]
  - Infection [Unknown]
  - Nocturia [Unknown]
  - On and off phenomenon [Unknown]
  - Gastrointestinal disorder [Unknown]
  - Rectal haemorrhage [Not Recovered/Not Resolved]
  - Intestinal prolapse [Unknown]

NARRATIVE: CASE EVENT DATE: 20150325
